FAERS Safety Report 8083489-9 (Version None)
Quarter: 2012Q1

REPORT INFORMATION
  Report Type: 
  Country: None (occurrence: None)
  Receive Date: 20120127
  Receipt Date: 20110126
  Transmission Date: 20120608
  Serious: No
  Sender: FDA-Public Use
  Company Number: US-ABBOTT-11P-163-0700785-00

PATIENT
  Sex: Female
  Weight: 67.192 kg

DRUGS (4)
  1. HUMIRA [Suspect]
     Indication: CROHN'S DISEASE
     Dates: start: 20090901
  2. QUESTRAN [Concomitant]
     Indication: LIVER DISORDER
     Dosage: 1 PACK A DAY
  3. EFFEXOR XR [Concomitant]
     Indication: CROHN'S DISEASE
  4. IMITREX [Concomitant]
     Indication: MIGRAINE

REACTIONS (1)
  - OVARIAN CYST [None]
